FAERS Safety Report 16175695 (Version 4)
Quarter: 2019Q2

REPORT INFORMATION
  Report Type: Spontaneous
  Country: JP (occurrence: JP)
  Receive Date: 20190409
  Receipt Date: 20190615
  Transmission Date: 20190711
  Serious: Yes (Other)
  Sender: FDA-Public Use
  Company Number: JP-ROCHE-2299349

PATIENT
  Age: 76 Year
  Sex: Male

DRUGS (11)
  1. TEPRENONE [Concomitant]
     Active Substance: TEPRENONE
     Indication: INFLUENZA
     Route: 048
     Dates: start: 20190129
  2. SIMVASTATIN. [Concomitant]
     Active Substance: SIMVASTATIN
     Indication: HYPERLIPIDAEMIA
     Route: 048
     Dates: start: 20051101
  3. BERACHIN [Concomitant]
     Indication: BRONCHITIS
  4. XOFLUZA [Suspect]
     Active Substance: BALOXAVIR MARBOXIL
     Indication: INFLUENZA
     Route: 048
     Dates: start: 20190204, end: 20190204
  5. MEDICON [DEXTROMETHORPHAN HYDROBROMIDE] [Suspect]
     Active Substance: DEXTROMETHORPHAN HYDROBROMIDE
     Indication: PRODUCT USED FOR UNKNOWN INDICATION
     Route: 048
     Dates: start: 20190204, end: 20190209
  6. CAFFEINE;PARACETAMOL;PROMETHAZINE METHYLENE DISALICYLATE;SALICYLAMIDE [Suspect]
     Active Substance: ACETAMINOPHEN\CAFFEINE\PROMETHAZINE\SALICYLAMIDE
     Indication: PRODUCT USED FOR UNKNOWN INDICATION
     Dosage: 3 DOSAGE FORM
     Route: 048
     Dates: start: 20190204, end: 20190209
  7. BISOPROLOL FUMARATE. [Concomitant]
     Active Substance: BISOPROLOL FUMARATE
     Indication: ANGINA PECTORIS
  8. LUNESTA [Concomitant]
     Active Substance: ESZOPICLONE
     Indication: BRONCHITIS
     Route: 065
     Dates: start: 20161019
  9. LUNESTA [Concomitant]
     Active Substance: ESZOPICLONE
     Indication: INSOMNIA
  10. BISOPROLOL FUMARATE. [Concomitant]
     Active Substance: BISOPROLOL FUMARATE
     Indication: HYPERTENSION
     Route: 048
     Dates: start: 20080119
  11. BAYMYCARD [Concomitant]
     Active Substance: NISOLDIPINE

REACTIONS (3)
  - Diarrhoea [Recovered/Resolved]
  - Loss of consciousness [Recovered/Resolved]
  - Feeling cold [Recovered/Resolved]

NARRATIVE: CASE EVENT DATE: 20190204
